FAERS Safety Report 14952300 (Version 1)
Quarter: 2018Q2

REPORT INFORMATION
  Report Type: Spontaneous
  Country: US (occurrence: US)
  Receive Date: 20180530
  Receipt Date: 20180530
  Transmission Date: 20180711
  Serious: No
  Sender: FDA-Public Use
  Company Number: US-PFIZER INC-2018210663

PATIENT
  Sex: Female

DRUGS (2)
  1. NAVANE [Suspect]
     Active Substance: THIOTHIXENE
     Indication: MENTAL DISORDER
     Dosage: UNK
  2. NAVANE [Suspect]
     Active Substance: THIOTHIXENE
     Indication: DEMENTIA

REACTIONS (3)
  - Hallucination [Unknown]
  - Withdrawal syndrome [Unknown]
  - Abnormal behaviour [Unknown]
